FAERS Safety Report 9123218 (Version 1)
Quarter: 2013Q1

REPORT INFORMATION
  Report Type: Report from Study
  Country: US (occurrence: US)
  Receive Date: 20130227
  Receipt Date: 20130227
  Transmission Date: 20140127
  Serious: No
  Sender: FDA-Public Use
  Company Number: US-VERTEX PHARMACEUTICALS INC.-2013-002664

PATIENT
  Age: 61 Year
  Sex: Female
  Weight: 98 kg

DRUGS (7)
  1. VX-950 (TELAPREVIR) [Suspect]
     Indication: HEPATITIS C
     Dosage: 750 MG, TID
     Route: 048
  2. LANTUS [Concomitant]
     Dosage: 100/ML
     Route: 058
  3. METFORMIN [Concomitant]
     Dosage: 1000 MG, UNK
     Route: 048
  4. MULTIVITAMIN [Concomitant]
     Route: 048
  5. CRANBERRY [Concomitant]
     Route: 048
  6. WELCHOL [Concomitant]
     Dosage: 625 MG, UNK
     Route: 048
  7. NOVOLOG [Concomitant]

REACTIONS (2)
  - Haemoglobin decreased [Unknown]
  - Pruritus [Unknown]
